FAERS Safety Report 9071738 (Version 1)
Quarter: 2013Q1

REPORT INFORMATION
  Report Type: Spontaneous
  Country: US (occurrence: US)
  Receive Date: 20130129
  Receipt Date: 20130129
  Transmission Date: 20140127
  Serious: Yes (Other)
  Sender: FDA-Public Use
  Company Number: US-BRISTOL-MYERS SQUIBB COMPANY-17301409

PATIENT
  Age: 55 Year
  Sex: Male

DRUGS (1)
  1. KENALOG-40 INJ [Suspect]
     Indication: SPINAL ANAESTHESIA
     Dates: start: 20120411

REACTIONS (7)
  - Blindness unilateral [Unknown]
  - Drug administered at inappropriate site [Unknown]
  - Teeth brittle [Unknown]
  - Pain [Unknown]
  - Headache [Unknown]
  - Eye pain [Unknown]
  - Ocular hyperaemia [Unknown]
